FAERS Safety Report 5607726-2 (Version None)
Quarter: 2008Q1

REPORT INFORMATION
  Report Type: 
  Country: None (occurrence: None)
  Receive Date: 20080130
  Receipt Date: 20080122
  Transmission Date: 20080703
  Serious: Yes (Hospitalization)
  Sender: FDA-Public Use
  Company Number: US-JNJFOC-20080105547

PATIENT
  Age: 3 Year
  Sex: Male

DRUGS (1)
  1. TYLENOL (CAPLET) [Suspect]
     Indication: PYREXIA

REACTIONS (1)
  - CONVULSION [None]
